FAERS Safety Report 14030541 (Version 1)
Quarter: 2017Q4

REPORT INFORMATION
  Report Type: Spontaneous
  Country: US (occurrence: US)
  Receive Date: 20171002
  Receipt Date: 20171002
  Transmission Date: 20180321
  Serious: No
  Sender: FDA-Public Use
  Company Number: US-MAYNE PHARMA-2017MYN001117

PATIENT

DRUGS (1)
  1. FENTANYL. [Suspect]
     Active Substance: FENTANYL
     Indication: BACK PAIN
     Dosage: 2 DF, Q72H
     Route: 062
     Dates: start: 20170610, end: 201706

REACTIONS (6)
  - Product adhesion issue [Unknown]
  - Hallucination [Recovered/Resolved]
  - Screaming [Recovered/Resolved]
  - Delusion [Recovered/Resolved]
  - Crying [Recovered/Resolved]
  - Product quality issue [None]

NARRATIVE: CASE EVENT DATE: 201706
